FAERS Safety Report 7295875-5 (Version None)
Quarter: 2011Q1

REPORT INFORMATION
  Report Type: 
  Country: None (occurrence: None)
  Receive Date: 20110216
  Receipt Date: 20110106
  Transmission Date: 20110831
  Serious: No
  Sender: FDA-Public Use
  Company Number: US-ABBOTT-11P-163-0696432-00

PATIENT
  Sex: Female
  Weight: 65.83 kg

DRUGS (1)
  1. SIMCOR [Suspect]
     Indication: BLOOD CHOLESTEROL
     Dosage: DAILY AT BEDTIME
     Dates: start: 20110106, end: 20110106

REACTIONS (5)
  - SKIN BURNING SENSATION [None]
  - RASH MACULAR [None]
  - URTICARIA [None]
  - CHILLS [None]
  - PRURITUS [None]
